FAERS Safety Report 6249337-4 (Version None)
Quarter: 2009Q2

REPORT INFORMATION
  Report Type: 
  Country: None (occurrence: None)
  Receive Date: 20090629
  Receipt Date: 20090609
  Transmission Date: 20091009
  Serious: Yes (Other)
  Sender: FDA-Public Use
  Company Number: IE-MERCK-0906GBR00045

PATIENT
  Age: 26 Year
  Sex: Male

DRUGS (1)
  1. PROSCAR [Suspect]
     Indication: ANDROGENETIC ALOPECIA
     Route: 048
     Dates: start: 20060901, end: 20070101

REACTIONS (21)
  - ADVERSE EVENT [None]
  - AMNESIA [None]
  - ASTHENIA [None]
  - DEPRESSION [None]
  - DIARRHOEA [None]
  - ERECTILE DYSFUNCTION [None]
  - FATIGUE [None]
  - INTENTIONAL DRUG MISUSE [None]
  - LOSS OF LIBIDO [None]
  - MALE ORGASMIC DISORDER [None]
  - MENTAL IMPAIRMENT [None]
  - MOOD SWINGS [None]
  - MUSCLE ATROPHY [None]
  - OSTEOPENIA [None]
  - PERIPHERAL COLDNESS [None]
  - POLLAKIURIA [None]
  - SEMEN VOLUME DECREASED [None]
  - SEXUAL DYSFUNCTION [None]
  - SOMNOLENCE [None]
  - SUICIDAL IDEATION [None]
  - WRONG TECHNIQUE IN DRUG USAGE PROCESS [None]
